FAERS Safety Report 8309644-8 (Version None)
Quarter: 2012Q2

REPORT INFORMATION
  Report Type: 
  Country: None (occurrence: None)
  Receive Date: 20120425
  Receipt Date: 20120417
  Transmission Date: 20120825
  Serious: Yes (Other)
  Sender: FDA-Public Use
  Company Number: FR-PFIZER INC-2012095524

PATIENT

DRUGS (1)
  1. CYTARABINE [Suspect]
     Dosage: UNK

REACTIONS (1)
  - HAEMOLYTIC URAEMIC SYNDROME [None]
